FAERS Safety Report 10431360 (Version 2)
Quarter: 2014Q3

REPORT INFORMATION
  Report Type: Spontaneous
  Country: US (occurrence: None)
  Receive Date: 20140903
  Receipt Date: 20140924
  Transmission Date: 20150326
  Serious: Yes (Hospitalization)
  Sender: FDA-Public Use
  Company Number: 2014-US-010853

PATIENT
  Age: 33 Year
  Sex: Male

DRUGS (2)
  1. XYREM [Suspect]
     Active Substance: SODIUM OXYBATE
     Indication: NARCOLEPSY
     Dosage: 4.5 G, FIRST DOSE, ORAL
     Route: 048
     Dates: start: 201207, end: 2013
  2. XYREM [Suspect]
     Active Substance: SODIUM OXYBATE
     Indication: CATAPLEXY
     Dosage: 4.5 G, FIRST DOSE, ORAL
     Route: 048
     Dates: start: 201207, end: 2013

REACTIONS (1)
  - Tonsillar disorder [None]

NARRATIVE: CASE EVENT DATE: 201406
